FAERS Safety Report 7291297-1 (Version None)
Quarter: 2011Q1

REPORT INFORMATION
  Report Type: 
  Country: None (occurrence: None)
  Receive Date: 20110214
  Receipt Date: 20110209
  Transmission Date: 20110831
  Serious: Yes (Hospitalization)
  Sender: FDA-Public Use
  Company Number: A0756564A

PATIENT
  Age: 53 Year
  Sex: Male
  Weight: 104.5 kg

DRUGS (1)
  1. AVANDIA [Suspect]
     Dosage: 4MG TWICE PER DAY
     Route: 048
     Dates: start: 20020301, end: 20050301

REACTIONS (9)
  - THROMBOSIS [None]
  - CEREBROVASCULAR ACCIDENT [None]
  - CORONARY ARTERY OCCLUSION [None]
  - CARDIAC DISORDER [None]
  - DEPRESSION [None]
  - DISABILITY [None]
  - INSOMNIA [None]
  - NERVE INJURY [None]
  - DIPLEGIA [None]
